FAERS Safety Report 15660966 (Version 2)
Quarter: 2019Q1

REPORT INFORMATION
  Report Type: Report from Study
  Country: US (occurrence: US)
  Receive Date: 20181127
  Receipt Date: 20190221
  Transmission Date: 20190417
  Serious: Yes (Other)
  Sender: FDA-Public Use
  Company Number: US-JNJFOC-20181133779

PATIENT
  Sex: Male

DRUGS (10)
  1. ICAPS AREDS FORMULA [Concomitant]
  2. BREO ELLIPTA [Concomitant]
     Active Substance: FLUTICASONE FUROATE\VILANTEROL TRIFENATATE
  3. IMBRUVICA [Suspect]
     Active Substance: IBRUTINIB
     Indication: LYMPHOCYTIC LEUKAEMIA
     Route: 048
     Dates: start: 20180502
  4. IMBRUVICA [Suspect]
     Active Substance: IBRUTINIB
     Indication: LYMPHOCYTIC LEUKAEMIA
     Route: 048
     Dates: start: 20160831, end: 20180501
  5. ACYCLOVIR. [Concomitant]
     Active Substance: ACYCLOVIR
  6. FLOMAX [Concomitant]
     Active Substance: TAMSULOSIN HYDROCHLORIDE
  7. IMBRUVICA [Suspect]
     Active Substance: IBRUTINIB
     Indication: LYMPHOCYTIC LEUKAEMIA
     Route: 048
     Dates: start: 20181026
  8. ALOE VERA [Concomitant]
     Active Substance: ALOE VERA LEAF
  9. MALUS SPP [Concomitant]
  10. INCRUSE ELLIPTA [Concomitant]
     Active Substance: UMECLIDINIUM BROMIDE

REACTIONS (4)
  - Increased tendency to bruise [Unknown]
  - Epistaxis [Not Recovered/Not Resolved]
  - Blood viscosity decreased [Unknown]
  - Onychomycosis [Unknown]
